FAERS Safety Report 23158101 (Version 1)
Quarter: 2023Q4

REPORT INFORMATION
  Report Type: Report from Study
  Country: US (occurrence: US)
  Receive Date: 20231108
  Receipt Date: 20231108
  Transmission Date: 20240110
  Serious: Yes (Other)
  Sender: FDA-Public Use
  Company Number: US-ALXN-A202311214

PATIENT
  Sex: Female

DRUGS (3)
  1. ULTOMIRIS [Suspect]
     Active Substance: RAVULIZUMAB-CWVZ
     Indication: Myasthenia gravis
     Dosage: UNK
     Route: 065
  2. MECLIZINE                          /00072801/ [Concomitant]
     Indication: Product used for unknown indication
     Dosage: UNK
     Route: 065
  3. MESTINON [Concomitant]
     Active Substance: PYRIDOSTIGMINE BROMIDE
     Indication: Product used for unknown indication
     Dosage: UNK
     Route: 065

REACTIONS (31)
  - Cerebrovascular accident [Unknown]
  - Blood pressure increased [Recovering/Resolving]
  - Diplopia [Unknown]
  - Peripheral swelling [Unknown]
  - Pain [Unknown]
  - Vertigo [Unknown]
  - Urine output increased [Unknown]
  - Rhinorrhoea [Unknown]
  - Asthenopia [Unknown]
  - Nightmare [Unknown]
  - Bite [Unknown]
  - Ocular discomfort [Unknown]
  - Limb discomfort [Unknown]
  - Eyelid ptosis [Unknown]
  - Hypersensitivity [Unknown]
  - Contusion [Unknown]
  - Back disorder [Unknown]
  - Mobility decreased [Unknown]
  - Pain in extremity [Unknown]
  - Back pain [Unknown]
  - Joint injury [Unknown]
  - Rotator cuff syndrome [Unknown]
  - Eye disorder [Unknown]
  - Feeling abnormal [Unknown]
  - Dizziness [Recovering/Resolving]
  - Asthenia [Unknown]
  - Muscle spasms [Unknown]
  - Fatigue [Not Recovered/Not Resolved]
  - Diarrhoea [Unknown]
  - Nausea [Unknown]
  - Pruritus [Unknown]

NARRATIVE: CASE EVENT DATE: 20230801
